FAERS Safety Report 6628680-0 (Version None)
Quarter: 2010Q1

REPORT INFORMATION
  Report Type: 
  Country: None (occurrence: None)
  Receive Date: 20100311
  Receipt Date: 20100301
  Transmission Date: 20100710
  Serious: Yes (Other)
  Sender: FDA-Public Use
  Company Number: US-JNJFOC-20091202227

PATIENT
  Age: 36 Year
  Sex: Female

DRUGS (4)
  1. REMICADE [Suspect]
     Indication: PSORIATIC ARTHROPATHY
     Dosage: ON DRUG 2 YEARS
     Route: 042
  2. REMICADE [Suspect]
     Indication: PSORIASIS
     Dosage: ON DRUG 2 YEARS
     Route: 042
  3. METHOTREXATE [Concomitant]
  4. CYCLOSPORINE [Concomitant]

REACTIONS (1)
  - SICCA SYNDROME [None]
